FAERS Safety Report 16149750 (Version 3)
Quarter: 2019Q3

REPORT INFORMATION
  Report Type: Report from Study
  Country: US (occurrence: US)
  Receive Date: 20190402
  Receipt Date: 20190702
  Transmission Date: 20191004
  Serious: Yes (Hospitalization, Other)
  Sender: FDA-Public Use
  Company Number: PHEH2019US013325

PATIENT
  Age: 12 Year
  Sex: Male
  Weight: 41 kg

DRUGS (4)
  1. LAMPRENE [Suspect]
     Active Substance: CLOFAZIMINE
     Indication: MYCOBACTERIAL INFECTION
     Dosage: 100 MG, QD
     Route: 048
     Dates: start: 20190128, end: 20190620
  2. LAMPRENE [Suspect]
     Active Substance: CLOFAZIMINE
     Indication: MYCOBACTERIUM ABSCESSUS INFECTION
  3. LAMPRENE [Suspect]
     Active Substance: CLOFAZIMINE
     Indication: CYSTIC FIBROSIS
     Dosage: 100 MG, QD
     Route: 048
     Dates: start: 20190107
  4. INSULIN [Concomitant]
     Active Substance: INSULIN NOS
     Indication: PRODUCT USED FOR UNKNOWN INDICATION
     Route: 065

REACTIONS (16)
  - Somnolence [Unknown]
  - Bronchial wall thickening [Unknown]
  - Carbon dioxide decreased [Unknown]
  - Weight decreased [Not Recovered/Not Resolved]
  - Bronchiectasis [Unknown]
  - Pulmonary mass [Unknown]
  - Fatigue [Unknown]
  - Decreased appetite [Unknown]
  - White blood cell count increased [Unknown]
  - Haemoglobin decreased [Unknown]
  - Cystic fibrosis related diabetes [Not Recovered/Not Resolved]
  - Asthenia [Unknown]
  - Oxygen saturation decreased [Unknown]
  - Red blood cell count decreased [Unknown]
  - Hyperglycaemia [Unknown]
  - Infective pulmonary exacerbation of cystic fibrosis [Not Recovered/Not Resolved]

NARRATIVE: CASE EVENT DATE: 20190107
